FAERS Safety Report 25834686 (Version 3)
Quarter: 2025Q4

REPORT INFORMATION
  Report Type: Spontaneous
  Country: US (occurrence: US)
  Receive Date: 20250923
  Receipt Date: 20251229
  Transmission Date: 20260117
  Serious: Yes (Other)
  Sender: BRISTOL-MYERS SQUIBB COMPANY
  Company Number: US-EXELIXIS-EXL-2025-011646

PATIENT
  Age: 34 Year
  Sex: Male

DRUGS (3)
  1. OPDIVO [Suspect]
     Active Substance: NIVOLUMAB
     Indication: Renal cell carcinoma
     Dosage: UNK
  2. CABOMETYX [Suspect]
     Active Substance: CABOZANTINIB S-MALATE
     Indication: Renal cell carcinoma
     Dosage: 40 MG
  3. VITAMINS [Concomitant]
     Active Substance: VITAMINS
     Indication: Product used for unknown indication

REACTIONS (12)
  - Blindness [Unknown]
  - Fatigue [Unknown]
  - Vomiting [Recovered/Resolved]
  - Blood iron decreased [Unknown]
  - Weight increased [Unknown]
  - Abdominal distension [Unknown]
  - Dehydration [Unknown]
  - Decreased appetite [Unknown]
  - Blister [Unknown]
  - Taste disorder [Unknown]
  - Acne [Unknown]
  - Hypersensitivity [Unknown]
